FAERS Safety Report 6700454-1 (Version None)
Quarter: 2010Q2

REPORT INFORMATION
  Report Type: 
  Country: None (occurrence: None)
  Receive Date: 20100428
  Receipt Date: 20100426
  Transmission Date: 20101027
  Serious: Yes (Other)
  Sender: FDA-Public Use
  Company Number: US-ASTRAZENECA-2010SE18679

PATIENT
  Age: 64 Year
  Sex: Male

DRUGS (7)
  1. TOPROL-XL [Suspect]
     Route: 048
  2. LIPITOR [Suspect]
  3. SPIRIVA [Suspect]
  4. FUROSEMIDE [Suspect]
  5. ADVAIR DISKUS 100/50 [Suspect]
     Dosage: 500/50
  6. BENAZEPRIL HYDROCHLORIDE [Suspect]
  7. PROAIR HFA [Suspect]

REACTIONS (1)
  - MYALGIA [None]
